FAERS Safety Report 22207062 (Version 1)
Quarter: 2023Q2

REPORT INFORMATION
  Report Type: Other
  Country: US (occurrence: None)
  Receive Date: 20230413
  Receipt Date: 20230413
  Transmission Date: 20230722
  Serious: Yes (Hospitalization, Other)
  Sender: FDA-Public Use
  Company Number: US-Navinta LLC-000435

PATIENT
  Age: 56 Year
  Sex: Male

DRUGS (1)
  1. NICARDIPINE [Suspect]
     Active Substance: NICARDIPINE
     Indication: Vasospasm
     Dosage: 4 - 5 MG OF NICARDIPINE MIXED WITH 2ML?OF NACL 0.9%
     Route: 037

REACTIONS (1)
  - Delayed ischaemic neurological deficit [Unknown]
